FAERS Safety Report 6310386-9 (Version None)
Quarter: 2009Q3

REPORT INFORMATION
  Report Type: 
  Country: None (occurrence: None)
  Receive Date: 20090814
  Receipt Date: 20090804
  Transmission Date: 20100115
  Serious: Yes (Hospitalization)
  Sender: FDA-Public Use
  Company Number: PHHY2009DE32797

PATIENT
  Sex: Female

DRUGS (5)
  1. CERTICAN [Suspect]
     Indication: RENAL TRANSPLANT
     Dosage: UNK
     Route: 048
  2. CELLCEPT [Concomitant]
  3. DOXEPIN HCL [Concomitant]
  4. INVEGA [Concomitant]
  5. RAMIPRIL [Concomitant]
     Indication: HYPERTENSION

REACTIONS (2)
  - DEPRESSION [None]
  - SCHIZOAFFECTIVE DISORDER [None]
